FAERS Safety Report 5471824-7 (Version None)
Quarter: 2007Q3

REPORT INFORMATION
  Report Type: 
  Country: None (occurrence: None)
  Receive Date: 20070928
  Receipt Date: 20070614
  Transmission Date: 20080115
  Serious: No
  Sender: FDA-Public Use
  Company Number: US-BRISTOL-MYERS SQUIBB COMPANY-13813605

PATIENT
  Age: 49 Year
  Sex: Female

DRUGS (6)
  1. DEFINITY [Suspect]
  2. PROPANOL [Concomitant]
  3. BUSPIRONE [Concomitant]
  4. NEXIUM [Concomitant]
  5. FERROUS [Concomitant]
  6. HEPSERA [Concomitant]

REACTIONS (1)
  - BACK PAIN [None]
